FAERS Safety Report 6169887-9 (Version None)
Quarter: 2009Q2

REPORT INFORMATION
  Report Type: 
  Country: None (occurrence: None)
  Receive Date: 20090428
  Receipt Date: 20090416
  Transmission Date: 20091009
  Serious: Yes (Hospitalization, Other)
  Sender: FDA-Public Use
  Company Number: US-PFIZER INC-2004224163US

PATIENT
  Sex: Female
  Weight: 68.04 kg

DRUGS (6)
  1. PROVERA [Suspect]
     Indication: MENOPAUSAL SYMPTOMS
     Route: 048
     Dates: start: 19740101, end: 19840101
  2. PREMARIN [Suspect]
     Indication: HORMONE REPLACEMENT THERAPY
     Dates: start: 19740101, end: 19840101
  3. PREMPRO [Suspect]
     Indication: HORMONE REPLACEMENT THERAPY
     Dates: start: 19840101, end: 19970627
  4. TRANDOLAPRIL [Concomitant]
     Indication: HYPERTENSION
     Dosage: DAILY
     Dates: start: 20020101
  5. PHENTERMINE [Concomitant]
     Indication: DECREASED APPETITE
     Dates: start: 20000101
  6. TRIAMTERENE AND HYDROCHLOROTHIAZIDE [Concomitant]
     Indication: DIURETIC THERAPY
     Dates: start: 20020101

REACTIONS (1)
  - BREAST CANCER FEMALE [None]
